FAERS Safety Report 24230417 (Version 1)
Quarter: 2024Q3

REPORT INFORMATION
  Report Type: Spontaneous
  Country: BR (occurrence: BR)
  Receive Date: 20240821
  Receipt Date: 20240821
  Transmission Date: 20241016
  Serious: Yes (Hospitalization, Other)
  Sender: RANBAXY
  Company Number: BR-SUN PHARMACEUTICAL INDUSTRIES LTD-2024R1-461851

PATIENT
  Age: 62 Year
  Sex: Male

DRUGS (1)
  1. IMATINIB [Suspect]
     Active Substance: IMATINIB
     Indication: Gastrointestinal stromal tumour
     Dosage: UNKNOWN
     Route: 065

REACTIONS (2)
  - Disease recurrence [Unknown]
  - Drug resistance [Unknown]
